FAERS Safety Report 7450766-1 (Version None)
Quarter: 2011Q2

REPORT INFORMATION
  Report Type: 
  Country: None (occurrence: None)
  Receive Date: 20110422
  Receipt Date: 20110419
  Transmission Date: 20111010
  Serious: Yes (Hospitalization)
  Sender: FDA-Public Use
  Company Number: 1000020342

PATIENT
  Age: 75 Year
  Sex: Male

DRUGS (1)
  1. DALIRESP [Suspect]
     Dates: start: 20110407, end: 20110408

REACTIONS (1)
  - VENTRICULAR TACHYCARDIA [None]
